FAERS Safety Report 25020616 (Version 1)
Quarter: 2025Q1

REPORT INFORMATION
  Report Type: Spontaneous
  Country: US (occurrence: US)
  Receive Date: 20250227
  Receipt Date: 20250227
  Transmission Date: 20250409
  Serious: No
  Sender: GALDERMA
  Company Number: US-GALDERMA-US2025001055

PATIENT
  Sex: Male

DRUGS (2)
  1. NEMLUVIO [Suspect]
     Active Substance: NEMOLIZUMAB-ILTO
     Indication: Product used for unknown indication
     Route: 058
     Dates: start: 202411, end: 202411
  2. NEMLUVIO [Suspect]
     Active Substance: NEMOLIZUMAB-ILTO
     Route: 058
     Dates: start: 20250106, end: 20250106

REACTIONS (7)
  - Headache [Recovering/Resolving]
  - Rhinorrhoea [Recovering/Resolving]
  - Respiratory disorder [Recovering/Resolving]
  - Sinusitis [Recovering/Resolving]
  - Pharyngitis [Recovering/Resolving]
  - Pruritus [Not Recovered/Not Resolved]
  - Acne [Not Recovered/Not Resolved]
